FAERS Safety Report 8218423-1 (Version None)
Quarter: 2012Q1

REPORT INFORMATION
  Report Type: 
  Country: None (occurrence: None)
  Receive Date: 20120319
  Receipt Date: 20120315
  Transmission Date: 20120608
  Serious: No
  Sender: FDA-Public Use
  Company Number: US-PFIZER INC-2012068791

PATIENT
  Sex: Female
  Weight: 130 kg

DRUGS (3)
  1. LORATADINE [Concomitant]
     Indication: HYPERSENSITIVITY
     Dosage: 10 MG, DAILY
  2. CELEBREX [Suspect]
     Indication: SPONDYLITIS
     Dosage: 200 MG, 2X/DAY
     Dates: start: 20070101
  3. HYDROCHLOROTHIAZIDE [Suspect]
     Indication: FLUID RETENTION
     Dosage: UNK
     Dates: start: 20070101

REACTIONS (3)
  - CHRONIC OBSTRUCTIVE PULMONARY DISEASE [None]
  - THYROID DISORDER [None]
  - LARYNGITIS [None]
